FAERS Safety Report 14157451 (Version 3)
Quarter: 2017Q4

REPORT INFORMATION
  Report Type: Spontaneous
  Country: DK (occurrence: DK)
  Receive Date: 20171103
  Receipt Date: 20171121
  Transmission Date: 20180321
  Serious: Yes (Other)
  Sender: FDA-Public Use
  Company Number: DK-TEVA-819703ROM

PATIENT
  Age: 52 Year
  Sex: Male

DRUGS (5)
  1. FLECAINIDE [Interacting]
     Active Substance: FLECAINIDE
     Dosage: 200 MILLIGRAM DAILY;
     Route: 065
  2. WARFARIN [Suspect]
     Active Substance: WARFARIN
     Route: 065
  3. VERAPAMIL [Interacting]
     Active Substance: VERAPAMIL HYDROCHLORIDE
     Dosage: 240 MILLIGRAM DAILY;
     Route: 065
  4. LANSOPRAZOLE. [Suspect]
     Active Substance: LANSOPRAZOLE
     Dosage: 15 MILLIGRAM DAILY;
     Route: 065
  5. SERTRALINE [Interacting]
     Active Substance: SERTRALINE HYDROCHLORIDE
     Dosage: 100 MILLIGRAM DAILY;
     Route: 065

REACTIONS (4)
  - Drug interaction [Unknown]
  - Activated partial thromboplastin time prolonged [Recovered/Resolved]
  - Platelet disorder [Recovered/Resolved]
  - Haemorrhage [Recovering/Resolving]
